FAERS Safety Report 16241243 (Version 1)
Quarter: 2019Q2

REPORT INFORMATION
  Report Type: Spontaneous
  Country: CA (occurrence: CA)
  Receive Date: 20190425
  Receipt Date: 20190425
  Transmission Date: 20190711
  Serious: Yes (Life-Threatening, Other)
  Sender: FDA-Public Use
  Company Number: PHHY2019CA095336

PATIENT
  Age: 89 Year
  Sex: Female

DRUGS (3)
  1. VITAMIN K1 [Suspect]
     Active Substance: PHYTONADIONE
     Indication: INTERNATIONAL NORMALISED RATIO INCREASED
     Dosage: 2.0 MG, ONCE/SINGLE (10 MG/ML)
     Route: 040
  2. VITAMIN K1 [Suspect]
     Active Substance: PHYTONADIONE
     Indication: PREMEDICATION
     Dosage: 2.0 MG (10 MG/ML)
     Route: 048
  3. VITAMIN K1 [Suspect]
     Active Substance: PHYTONADIONE
     Dosage: 2.0 MG (1 MG/0.5 ML) (EMULSION)
     Route: 040

REACTIONS (7)
  - Cyanosis [Recovered/Resolved]
  - Respiratory failure [Recovered/Resolved]
  - Incorrect drug administration rate [Recovered/Resolved]
  - Pulse absent [Recovered/Resolved]
  - Flushing [Recovered/Resolved]
  - Incorrect route of product administration [Recovered/Resolved]
  - Loss of consciousness [Recovered/Resolved]
